FAERS Safety Report 5588346-5 (Version None)
Quarter: 2008Q1

REPORT INFORMATION
  Report Type: 
  Country: None (occurrence: None)
  Receive Date: 20080111
  Receipt Date: 20070926
  Transmission Date: 20080703
  Serious: No
  Sender: FDA-Public Use
  Company Number: A0684372A

PATIENT
  Age: 57 Year
  Sex: Female

DRUGS (6)
  1. TYKERB [Suspect]
     Indication: BREAST CANCER
     Dosage: 250MG FIVE TIMES PER DAY
     Route: 048
     Dates: start: 20070913
  2. LITHOBID [Concomitant]
  3. PAXIL [Concomitant]
  4. LORAZEPAM [Concomitant]
  5. DETROL [Concomitant]
  6. XELODA [Concomitant]

REACTIONS (3)
  - DIARRHOEA [None]
  - HEADACHE [None]
  - SKIN DISCOLOURATION [None]
